FAERS Safety Report 7234726-1 (Version None)
Quarter: 2011Q1

REPORT INFORMATION
  Report Type: 
  Country: None (occurrence: None)
  Receive Date: 20110120
  Receipt Date: 20110113
  Transmission Date: 20110831
  Serious: No
  Sender: FDA-Public Use
  Company Number: US-BIOGENIDEC-2011BI001765

PATIENT
  Age: 41 Year
  Sex: Female

DRUGS (3)
  1. AVONEX [Suspect]
     Indication: MULTIPLE SCLEROSIS
     Route: 030
     Dates: start: 20101208, end: 20101222
  2. AVONEX [Suspect]
     Route: 030
     Dates: start: 20101223, end: 20110105
  3. AVONEX [Suspect]
     Route: 030
     Dates: start: 20110106

REACTIONS (6)
  - PAIN [None]
  - DIPLEGIA [None]
  - BACK PAIN [None]
  - ASTHENIA [None]
  - MUSCULOSKELETAL STIFFNESS [None]
  - HEADACHE [None]
